FAERS Safety Report 21096785 (Version 2)
Quarter: 2022Q3

REPORT INFORMATION
  Report Type: Other
  Country: US (occurrence: None)
  Receive Date: 20220718
  Receipt Date: 20220831
  Transmission Date: 20221027
  Serious: Yes (Other)
  Sender: FDA-Public Use
  Company Number: US-ROCHE-2961587

PATIENT
  Sex: Female

DRUGS (2)
  1. VALCYTE [Suspect]
     Active Substance: VALGANCICLOVIR HYDROCHLORIDE
     Indication: Renal transplant
     Dosage: FOR 6 MONTHS
     Route: 065
  2. VALCYTE [Suspect]
     Active Substance: VALGANCICLOVIR HYDROCHLORIDE
     Route: 065
     Dates: start: 20220711, end: 20220817

REACTIONS (2)
  - Off label use [Unknown]
  - Cytomegalovirus infection [Recovered/Resolved]
